FAERS Safety Report 4681204-X (Version None)
Quarter: 2005Q2

REPORT INFORMATION
  Report Type: 
  Country: None (occurrence: None)
  Receive Date: 20050601
  Receipt Date: 20050524
  Transmission Date: 20051028
  Serious: Yes (Other)
  Sender: FDA-Public Use
  Company Number: 163-20785-05050398

PATIENT

DRUGS (1)
  1. THALOMID (THALIDOMIDE) (CAPSULES) [Suspect]
     Dosage: ORAL
     Route: 048

REACTIONS (2)
  - NEUROPATHY PERIPHERAL [None]
  - PERIPHERAL ISCHAEMIA [None]
